FAERS Safety Report 20893758 (Version 1)
Quarter: 2022Q2

REPORT INFORMATION
  Report Type: Spontaneous
  Country: CA (occurrence: CA)
  Receive Date: 20220531
  Receipt Date: 20220531
  Transmission Date: 20220721
  Serious: Yes (Other)
  Sender: FDA-Public Use
  Company Number: CA-AUROBINDO-AUR-APL-2022-018966

PATIENT
  Age: 73 Year
  Sex: Female

DRUGS (2)
  1. MOXIFLOXACIN [Suspect]
     Active Substance: MOXIFLOXACIN
     Indication: Pneumonia
     Dosage: 400.0 MILLIGRAM
     Route: 048
  2. SIMPONI [Suspect]
     Active Substance: GOLIMUMAB
     Indication: Ankylosing spondylitis
     Dosage: 50 MILLIGRAM EVERY MONTH
     Route: 058

REACTIONS (2)
  - Skin reaction [Recovered/Resolved]
  - Pneumonia [Recovered/Resolved]
